FAERS Safety Report 4783602-2 (Version None)
Quarter: 2005Q3

REPORT INFORMATION
  Report Type: 
  Country: None (occurrence: None)
  Receive Date: 20050929
  Receipt Date: 20050922
  Transmission Date: 20060218
  Serious: Yes (Death, Life-Threatening)
  Sender: FDA-Public Use
  Company Number: ID-JNJFOC-20050903648

PATIENT
  Age: 82 Year
  Sex: Female
  Weight: 49 kg

DRUGS (1)
  1. FENTANYL [Suspect]
     Route: 062

REACTIONS (2)
  - DEATH [None]
  - DEPRESSED LEVEL OF CONSCIOUSNESS [None]
